FAERS Safety Report 4653432-0 (Version None)
Quarter: 2005Q2

REPORT INFORMATION
  Report Type: 
  Country: None (occurrence: None)
  Receive Date: 20050503
  Receipt Date: 20050420
  Transmission Date: 20051028
  Serious: Yes (Death)
  Sender: FDA-Public Use
  Company Number: DE-2005-001746

PATIENT
  Sex: Male
  Weight: 80 kg

DRUGS (17)
  1. FLUDARA [Suspect]
     Indication: CHRONIC LYMPHOCYTIC LEUKAEMIA
     Dosage: 60 MG/M2, CYCLES, INTRAVENOUS
     Route: 042
     Dates: start: 20040112
  2. FLUDARA [Suspect]
     Indication: CHRONIC LYMPHOCYTIC LEUKAEMIA
     Dosage: 60 MG/M2, CYCLES, INTRAVENOUS
     Route: 042
     Dates: start: 20040210
  3. FLUDARA [Suspect]
     Indication: CHRONIC LYMPHOCYTIC LEUKAEMIA
     Dosage: 60 MG/M2, CYCLES, INTRAVENOUS
     Route: 042
     Dates: start: 20040316
  4. FLUDARA [Suspect]
     Indication: CHRONIC LYMPHOCYTIC LEUKAEMIA
     Dosage: 60 MG/M2, CYCLES, INTRAVENOUS
     Route: 042
     Dates: start: 20040419
  5. FLUDARA [Suspect]
     Indication: CHRONIC LYMPHOCYTIC LEUKAEMIA
     Dosage: 60 MG/M2, CYCLES, INTRAVENOUS
     Route: 042
     Dates: start: 20040517
  6. FLUDARA [Suspect]
     Indication: CHRONIC LYMPHOCYTIC LEUKAEMIA
     Dosage: 60 MG/M2, CYCLES, INTRAVENOUS
     Route: 042
     Dates: start: 20040614
  7. CYCLOPHOSPHAMIDE [Suspect]
     Indication: CHRONIC LYMPHOCYTIC LEUKAEMIA
     Dosage: 400 MG
     Dates: start: 20040112
  8. CYCLOPHOSPHAMIDE [Suspect]
     Indication: CHRONIC LYMPHOCYTIC LEUKAEMIA
     Dosage: 400 MG
     Dates: start: 20040316
  9. CYCLOPHOSPHAMIDE [Suspect]
     Indication: CHRONIC LYMPHOCYTIC LEUKAEMIA
     Dosage: 400 MG
     Dates: start: 20040419
  10. CYCLOPHOSPHAMIDE [Suspect]
     Indication: CHRONIC LYMPHOCYTIC LEUKAEMIA
     Dosage: 400 MG
     Dates: start: 20040517
  11. CYCLOPHOSPHAMIDE [Suspect]
     Indication: CHRONIC LYMPHOCYTIC LEUKAEMIA
     Dosage: 400 MG
     Dates: start: 20040614
  12. RITUXIMAB (RITUXIMAB) [Suspect]
     Dosage: 750 MG
     Dates: start: 20040210
  13. RITUXIMAB (RITUXIMAB) [Suspect]
     Dosage: 750 MG
     Dates: start: 20040316
  14. RITUXIMAB (RITUXIMAB) [Suspect]
     Dosage: 750 MG
     Dates: start: 20040419
  15. RITUXIMAB (RITUXIMAB) [Suspect]
     Dosage: 750 MG
     Dates: start: 20040517
  16. RITUXIMAB (RITUXIMAB) [Suspect]
     Dosage: 750 MG
     Dates: start: 20040614
  17. RITUXIMAB (RITUXIMAB) [Suspect]
     Dosage: 750 MG
     Dates: start: 20040112

REACTIONS (3)
  - LYMPHOCYTE COUNT DECREASED [None]
  - METASTATIC NEOPLASM [None]
  - WHITE BLOOD CELL COUNT DECREASED [None]
